FAERS Safety Report 9356728 (Version 2)
Quarter: 2013Q2

REPORT INFORMATION
  Report Type: Spontaneous
  Country: US (occurrence: US)
  Receive Date: 20130619
  Receipt Date: 20130628
  Transmission Date: 20140414
  Serious: Yes (Other)
  Sender: FDA-Public Use
  Company Number: PHEH2013US012994

PATIENT
  Sex: Female

DRUGS (1)
  1. DIOVAN [Suspect]

REACTIONS (4)
  - Diabetes mellitus [Unknown]
  - Insulin resistance [Unknown]
  - Accident at work [Unknown]
  - Eating disorder [Unknown]
